FAERS Safety Report 14495276 (Version 1)
Quarter: 2018Q1

REPORT INFORMATION
  Report Type: Spontaneous
  Country: US (occurrence: US)
  Receive Date: 20180206
  Receipt Date: 20180206
  Transmission Date: 20180509
  Serious: No
  Sender: FDA-Public Use
  Company Number: US-SMITH AND NEPHEW, INC-2016SMT01120

PATIENT
  Sex: Female
  Weight: 54.42 kg

DRUGS (14)
  1. ASPIRIN. [Concomitant]
     Active Substance: ASPIRIN
  2. UNSPECIFIED PAIN MEDICATION [Concomitant]
     Active Substance: UNSPECIFIED INGREDIENT
  3. FISH OIL [Concomitant]
     Active Substance: FISH OIL
  4. METOPROLOL. [Concomitant]
     Active Substance: METOPROLOL
  5. GLUCOPHAGE [Concomitant]
     Active Substance: METFORMIN HYDROCHLORIDE
  6. IRON [Concomitant]
     Active Substance: IRON
  7. ARICEPT [Concomitant]
     Active Substance: DONEPEZIL HYDROCHLORIDE
  8. LEVOTHYROXINE. [Concomitant]
     Active Substance: LEVOTHYROXINE
  9. TYLENOL [Concomitant]
     Active Substance: ACETAMINOPHEN
  10. REGRANEX [Suspect]
     Active Substance: BECAPLERMIN
     Indication: DIABETIC ULCER
     Dosage: UNK, 1X/DAY
     Route: 061
     Dates: start: 201611
  11. OXYCODONE [Concomitant]
     Active Substance: OXYCODONE
     Dosage: UNK, AS NEEDED
  12. FUROSEMIDE. [Concomitant]
     Active Substance: FUROSEMIDE
  13. COUMADIN [Concomitant]
     Active Substance: WARFARIN SODIUM
  14. LANTUS [Concomitant]
     Active Substance: INSULIN GLARGINE
     Dosage: UNK, AS NEEDED

REACTIONS (2)
  - Application site pain [Recovering/Resolving]
  - Incorrect drug administration duration [Not Recovered/Not Resolved]

NARRATIVE: CASE EVENT DATE: 2016
